FAERS Safety Report 10417819 (Version 1)
Quarter: 2014Q2

REPORT INFORMATION
  Report Type: Spontaneous
  Country: US (occurrence: None)
  Receive Date: 20140610
  Receipt Date: 20140610
  Transmission Date: 20141212
  Serious: Yes (Hospitalization)
  Sender: FDA-Public Use
  Company Number: 2013P1020674

PATIENT
  Age: 88 Year
  Sex: Female

DRUGS (1)
  1. CYCLOBENZAPRINE [Suspect]

REACTIONS (1)
  - Hallucination [None]
